FAERS Safety Report 6839905-0 (Version None)
Quarter: 2010Q3

REPORT INFORMATION
  Report Type: 
  Country: None (occurrence: None)
  Receive Date: 20100714
  Receipt Date: 20100709
  Transmission Date: 20110219
  Serious: Yes (Hospitalization)
  Sender: FDA-Public Use
  Company Number: US-GILEAD-2010-0030296

PATIENT
  Sex: Female
  Weight: 81.72 kg

DRUGS (12)
  1. LETAIRIS [Suspect]
     Indication: PULMONARY ARTERIAL HYPERTENSION
     Route: 048
     Dates: start: 20100311
  2. OXYGEN [Concomitant]
  3. ASPIRIN [Concomitant]
  4. TOPROL-XL [Concomitant]
  5. LOMOTIL [Concomitant]
  6. OMEPRAZOLE [Concomitant]
  7. REQUIP [Concomitant]
  8. TYLENOL [Concomitant]
  9. TYLENOL-500 [Concomitant]
  10. ZOLOFT [Concomitant]
  11. CALCIUM [Concomitant]
  12. CENTRUM SILVER [Concomitant]

REACTIONS (4)
  - ATRIAL FIBRILLATION [None]
  - CHRONIC OBSTRUCTIVE PULMONARY DISEASE [None]
  - PNEUMONIA [None]
  - SEPSIS [None]
